FAERS Safety Report 8590362-6 (Version None)
Quarter: 2012Q3

REPORT INFORMATION
  Report Type: 
  Country: None (occurrence: None)
  Receive Date: 20120813
  Receipt Date: 20120810
  Transmission Date: 20120928
  Serious: Yes (Hospitalization)
  Sender: FDA-Public Use
  Company Number: IT-PFIZER INC-2012196992

PATIENT
  Age: 51 Year
  Sex: Male

DRUGS (2)
  1. SOLU-MEDROL [Suspect]
     Indication: MULTIPLE SCLEROSIS
     Dosage: 1 G DAILY
     Route: 042
     Dates: start: 20120720, end: 20120721
  2. TYSABRI [Suspect]
     Indication: MULTIPLE SCLEROSIS
     Dosage: 300 MG, MONTHLY
     Route: 042
     Dates: start: 20100723, end: 20120704

REACTIONS (1)
  - LIVER DISORDER [None]
